FAERS Safety Report 5341088-3 (Version None)
Quarter: 2007Q2

REPORT INFORMATION
  Report Type: 
  Country: None (occurrence: None)
  Receive Date: 20070405
  Receipt Date: 20060503
  Transmission Date: 20071010
  Serious: No
  Sender: FDA-Public Use
  Company Number: 2006-01752

PATIENT
  Age: 32 Year
  Sex: Female
  Weight: 59 kg

DRUGS (6)
  1. FERRLECIT [Suspect]
     Indication: ANAEMIA
     Dosage: 125 MG, SINGLE, INTRAVENOUS
     Route: 042
     Dates: start: 20060501, end: 20060501
  2. CELLCEPT [Concomitant]
  3. AVAPRO [Concomitant]
  4. PREDNISONE TAB [Concomitant]
  5. PLAQUENIL [Concomitant]
  6. CALCIUM CHLORIDE [Concomitant]

REACTIONS (9)
  - BACK PAIN [None]
  - DYSPNOEA [None]
  - ERYTHEMA [None]
  - FATIGUE [None]
  - HEART RATE DECREASED [None]
  - OEDEMA PERIPHERAL [None]
  - PARAESTHESIA [None]
  - SOMNOLENCE [None]
  - URTICARIA [None]
